FAERS Safety Report 10587664 (Version 2)
Quarter: 2014Q4

REPORT INFORMATION
  Report Type: Spontaneous
  Country: US (occurrence: US)
  Receive Date: 20141117
  Receipt Date: 20141225
  Transmission Date: 20150529
  Serious: Yes (Other)
  Sender: FDA-Public Use
  Company Number: US-AMGEN-USASP2014087413

PATIENT
  Age: 73 Year
  Sex: Female
  Weight: 63.04 kg

DRUGS (1)
  1. PROLIA [Suspect]
     Active Substance: DENOSUMAB
     Indication: OSTEOPOROSIS
     Dosage: 60 MG, Q6MO
     Route: 058

REACTIONS (4)
  - Activities of daily living impaired [Recovering/Resolving]
  - Living in residential institution [Unknown]
  - Hypophagia [Recovering/Resolving]
  - Depression [Recovering/Resolving]
